FAERS Safety Report 25618686 (Version 1)
Quarter: 2025Q3

REPORT INFORMATION
  Report Type: Spontaneous
  Country: US (occurrence: US)
  Receive Date: 20250729
  Receipt Date: 20250729
  Transmission Date: 20251021
  Serious: No
  Sender: BRISTOL-MYERS SQUIBB COMPANY
  Company Number: US-BRISTOL-MYERS SQUIBB COMPANY-2025-105660

PATIENT
  Age: 9 Year
  Sex: Male

DRUGS (3)
  1. TRIAMCINOLONE ACETONIDE [Suspect]
     Active Substance: TRIAMCINOLONE ACETONIDE
     Indication: Uveitis
     Route: 031
  2. PREDNISONE [Concomitant]
     Active Substance: PREDNISONE
     Indication: Uveitis
  3. ADALIMUMAB [Concomitant]
     Active Substance: ADALIMUMAB
     Indication: Uveitis
     Dosage: DURATION: 4 MO

REACTIONS (2)
  - Intraocular pressure increased [Unknown]
  - Off label use [Unknown]
